FAERS Safety Report 18905379 (Version 3)
Quarter: 2021Q1

REPORT INFORMATION
  Report Type: Report from Study
  Country: None (occurrence: CH)
  Receive Date: 20210217
  Receipt Date: 20210316
  Transmission Date: 20210420
  Serious: Yes (Other)
  Sender: FDA-Public Use
  Company Number: CH-ABBVIE-21K-151-3777315-00

PATIENT
  Sex: Female

DRUGS (2)
  1. DUODOPA [Suspect]
     Active Substance: CARBIDOPA\LEVODOPA
     Indication: PARKINSON^S DISEASE
     Route: 050
     Dates: start: 20190513
  2. DUODOPA [Suspect]
     Active Substance: CARBIDOPA\LEVODOPA
     Dosage: MD: 7 ML, CRD: 3.6 ML/H, CRN: 0 ML/H, ED: 2 ML
     Route: 050

REACTIONS (3)
  - Muscle spasticity [Recovering/Resolving]
  - Pain in extremity [Recovering/Resolving]
  - Agitation [Unknown]

NARRATIVE: CASE EVENT DATE: 2021
